FAERS Safety Report 15019494 (Version 1)
Quarter: 2018Q2

REPORT INFORMATION
  Report Type: Spontaneous
  Country: US (occurrence: US)
  Receive Date: 20180617
  Receipt Date: 20180617
  Transmission Date: 20180711
  Serious: No
  Sender: FDA-Public Use
  Company Number: US-ASTRAZENECA-2018SE75218

PATIENT
  Sex: Male

DRUGS (1)
  1. FASENRA [Suspect]
     Active Substance: BENRALIZUMAB
     Indication: ASTHMA
     Dosage: 2.0DF UNKNOWN
     Route: 058

REACTIONS (4)
  - Respiratory disorder [Unknown]
  - Insomnia [Unknown]
  - Nasal congestion [Unknown]
  - Dysphonia [Unknown]
